FAERS Safety Report 5947534-6 (Version None)
Quarter: 2008Q4

REPORT INFORMATION
  Report Type: 
  Country: None (occurrence: None)
  Receive Date: 20081110
  Receipt Date: 20081104
  Transmission Date: 20090506
  Serious: Yes (Other)
  Sender: FDA-Public Use
  Company Number: US-ALLERGAN-0812843US

PATIENT
  Sex: Male

DRUGS (2)
  1. BOTOX [Suspect]
     Indication: BACK PAIN
     Dosage: UNK, SINGLE
     Route: 030
     Dates: start: 20080903, end: 20080903
  2. BOTOX [Suspect]
     Indication: ARTHRALGIA
     Dosage: UNK, SINGLE
     Route: 030
     Dates: start: 20080910, end: 20080910

REACTIONS (4)
  - LORDOSIS [None]
  - MUSCLE SPASMS [None]
  - MUSCULAR WEAKNESS [None]
  - THERAPEUTIC RESPONSE DECREASED [None]
